FAERS Safety Report 14123262 (Version 8)
Quarter: 2018Q4

REPORT INFORMATION
  Report Type: Spontaneous
  Country: GB (occurrence: GB)
  Receive Date: 20171025
  Receipt Date: 20181001
  Transmission Date: 20190204
  Serious: Yes (Disabling, Other)
  Sender: FDA-Public Use
  Company Number: GB-AUROBINDO-AUR-APL-2017-42336

PATIENT
  Age: 83 Year
  Sex: Female

DRUGS (28)
  1. FLECAINIDE [Concomitant]
     Active Substance: FLECAINIDE
     Indication: POLYMYALGIA RHEUMATICA
  2. RIVAROXABAN [Concomitant]
     Active Substance: RIVAROXABAN
     Indication: INTERNATIONAL NORMALISED RATIO
  3. RIVAROXABAN [Concomitant]
     Active Substance: RIVAROXABAN
     Indication: TRANSIENT ISCHAEMIC ATTACK
  4. METRONIDAZOLE TABLETS BP 400 MG [Suspect]
     Active Substance: METRONIDAZOLE
     Dosage: 400 MILLIGRAM, ONCE A DAY
     Route: 065
     Dates: start: 20170801
  5. FENTANYL. [Concomitant]
     Active Substance: FENTANYL
     Indication: PRODUCT USED FOR UNKNOWN INDICATION
     Dosage: 12 UG,UNK
     Route: 062
     Dates: start: 20160413
  6. ACETYLSALICYLIC ACID [Concomitant]
     Active Substance: ASPIRIN
     Indication: TYPE 2 DIABETES MELLITUS
     Dosage: 75 MG,QD
     Route: 065
     Dates: start: 20131030
  7. ONDANSETRON [Concomitant]
     Active Substance: ONDANSETRON
     Indication: PRODUCT USED FOR UNKNOWN INDICATION
     Dosage: 4 MG,TID
     Route: 065
     Dates: start: 20161017
  8. METRONIDAZOLE TABLETS BP 400 MG [Suspect]
     Active Substance: METRONIDAZOLE
     Indication: SEPSIS
     Dosage: 400 MG, DAILY
     Route: 065
     Dates: start: 20170222
  9. METRONIDAZOLE TABLETS BP 400 MG [Suspect]
     Active Substance: METRONIDAZOLE
     Dosage: 1200 MILLIGRAM, ONCE A DAY
     Route: 065
     Dates: start: 201704
  10. METRONIDAZOLE TABLETS BP 400 MG [Suspect]
     Active Substance: METRONIDAZOLE
     Dosage: 1200 UNK
     Route: 065
     Dates: start: 201706
  11. PREDNISOLONE. [Concomitant]
     Active Substance: PREDNISOLONE
     Indication: PRODUCT USED FOR UNKNOWN INDICATION
     Dosage: 5 MG,QD
     Route: 065
     Dates: start: 20170523
  12. PREDNISOLONE. [Concomitant]
     Active Substance: PREDNISOLONE
     Dosage: 1 MG,QD
     Route: 065
     Dates: start: 20060726
  13. FERROUS SULFATE. [Concomitant]
     Active Substance: FERROUS SULFATE
     Indication: ANAEMIA
     Dosage: 400 MG
     Route: 065
     Dates: start: 20161021
  14. NITROFURANTOIN. [Suspect]
     Active Substance: NITROFURANTOIN
     Indication: PRODUCT USED FOR UNKNOWN INDICATION
     Dosage: UNK
     Route: 065
  15. COLECALCIFEROL [Concomitant]
     Active Substance: CHOLECALCIFEROL
     Indication: POLYMYALGIA RHEUMATICA
     Dosage: 400 INTERNATIONAL UNIT
     Route: 065
     Dates: start: 20161124
  16. FERROUS SULFATE. [Concomitant]
     Active Substance: FERROUS SULFATE
     Dosage: 200 MILLIGRAM, ONCE A DAY
     Route: 065
     Dates: start: 20161021
  17. LEVOTHYROXINE                      /00068002/ [Concomitant]
     Active Substance: LEVOTHYROXINE
     Indication: HYPOTHYROIDISM
     Dosage: 100 ?G, DAILY
     Route: 065
     Dates: start: 20040824
  18. METRONIDAZOLE TABLETS BP 400 MG [Suspect]
     Active Substance: METRONIDAZOLE
     Dosage: 400 MILLIGRAM, ONCE A DAY
     Route: 065
     Dates: start: 20170601
  19. METRONIDAZOLE TABLETS BP 400 MG [Suspect]
     Active Substance: METRONIDAZOLE
     Dosage: 400 MG, 3 TIMES A DAY
     Route: 065
  20. METRONIDAZOLE TABLETS BP 400 MG [Suspect]
     Active Substance: METRONIDAZOLE
     Dosage: 1200 UNK
     Route: 065
     Dates: start: 20170222
  21. RIVAROXABAN [Concomitant]
     Active Substance: RIVAROXABAN
     Indication: ATRIAL FLUTTER
     Dosage: 15 MG,QD
     Route: 065
     Dates: start: 20160607
  22. METRONIDAZOLE TABLETS BP 400 MG [Suspect]
     Active Substance: METRONIDAZOLE
     Indication: DIVERTICULITIS
     Dosage: 400 MG, DAILY
     Route: 065
     Dates: start: 20170401
  23. FLECAINIDE [Concomitant]
     Active Substance: FLECAINIDE
     Indication: ATRIAL FIBRILLATION
     Dosage: 50 MG,QD
     Route: 065
     Dates: start: 20090521
  24. BISOPROLOL [Concomitant]
     Active Substance: BISOPROLOL
     Indication: POLYMYALGIA RHEUMATICA
     Dosage: 2.5 MG,QD
     Route: 065
     Dates: start: 20090612
  25. LANSOPRAZOLE. [Concomitant]
     Active Substance: LANSOPRAZOLE
     Indication: PRODUCT USED FOR UNKNOWN INDICATION
     Dosage: 30 MG,QD
     Route: 065
     Dates: start: 20140429
  26. CALCIUM CARBONATE AND VITAMIN D [Concomitant]
     Active Substance: CALCIUM CARBONATE\VITAMIN D
     Indication: POLYMYALGIA RHEUMATICA
     Dosage: 1 DOSAGE FORM, ONCE A DAY
     Route: 065
     Dates: start: 20161124
  27. METRONIDAZOLE TABLETS BP 400 MG [Suspect]
     Active Substance: METRONIDAZOLE
     Dosage: 1200 UNK
     Route: 065
     Dates: start: 201708
  28. ACETYLSALICYLIC ACID [Concomitant]
     Active Substance: ASPIRIN
     Indication: DIVERTICULITIS

REACTIONS (5)
  - Gait disturbance [Not Recovered/Not Resolved]
  - Peripheral sensorimotor neuropathy [Not Recovered/Not Resolved]
  - Hypoaesthesia [Recovering/Resolving]
  - Fine motor skill dysfunction [Recovering/Resolving]
  - Paraesthesia [Not Recovered/Not Resolved]

NARRATIVE: CASE EVENT DATE: 2017
